FAERS Safety Report 9469025 (Version 1)
Quarter: 2013Q3

REPORT INFORMATION
  Report Type: Spontaneous
  Country: US (occurrence: US)
  Receive Date: 20130821
  Receipt Date: 20130821
  Transmission Date: 20140515
  Serious: No
  Sender: FDA-Public Use
  Company Number: US-NOVEN-13US006927

PATIENT
  Age: 59 Year
  Sex: Female
  Weight: 76.19 kg

DRUGS (1)
  1. MINIVELLE [Suspect]
     Indication: MENOPAUSE
     Dosage: 0.1 MG, UNK
     Route: 062
     Dates: start: 20130303, end: 20130509

REACTIONS (3)
  - Headache [Recovered/Resolved]
  - Anxiety [Recovered/Resolved]
  - Off label use [None]
